FAERS Safety Report 5024042-0 (Version None)
Quarter: 2006Q2

REPORT INFORMATION
  Report Type: 
  Country: None (occurrence: None)
  Receive Date: 20060426
  Receipt Date: 20060317
  Transmission Date: 20061013
  Serious: Yes (Other)
  Sender: FDA-Public Use
  Company Number: 2006039661

PATIENT
  Age: 28 Year
  Sex: Male
  Weight: 65.318 kg

DRUGS (2)
  1. LYRICA [Suspect]
     Indication: NEURALGIA
     Dosage: 200 MG (100 MG, 2 IN 1 D), ORAL
     Route: 048
     Dates: start: 20060315, end: 20060316
  2. AMBIEN [Concomitant]

REACTIONS (1)
  - HYPOAESTHESIA ORAL [None]
